FAERS Safety Report 11863016 (Version 1)
Quarter: 2015Q4

REPORT INFORMATION
  Report Type: Spontaneous
  Country: US (occurrence: US)
  Receive Date: 20151223
  Receipt Date: 20151223
  Transmission Date: 20160305
  Serious: Yes (Hospitalization, Other)
  Sender: FDA-Public Use
  Company Number: US-AMGEN-USASP2015137017

PATIENT
  Age: 55 Year
  Sex: Female

DRUGS (29)
  1. MAGNESIUM [Concomitant]
     Active Substance: MAGNESIUM
  2. HYDROCHLOROTHIAZIDE. [Concomitant]
     Active Substance: HYDROCHLOROTHIAZIDE
  3. PANCREATIN [Concomitant]
     Active Substance: PANCRELIPASE
  4. ZINC [Concomitant]
     Active Substance: ZINC\ZINC CHLORIDE
  5. TRAZODONE [Concomitant]
     Active Substance: TRAZODONE HYDROCHLORIDE
  6. GABAPENTIN. [Concomitant]
     Active Substance: GABAPENTIN
  7. ZAFIRLUKAST. [Concomitant]
     Active Substance: ZAFIRLUKAST
  8. CALCIUM [Concomitant]
     Active Substance: CALCIUM
  9. ENBREL [Suspect]
     Active Substance: ETANERCEPT
     Indication: RHEUMATOID ARTHRITIS
     Dosage: 50 MG, QWK
     Route: 058
     Dates: start: 201010
  10. METHOTREXATE [Suspect]
     Active Substance: METHOTREXATE
     Indication: RHEUMATOID ARTHRITIS
     Dosage: 20 MG, QWK
     Route: 058
  11. CHLORZOXAZONE. [Concomitant]
     Active Substance: CHLORZOXAZONE
  12. CYCLOSPORINE. [Concomitant]
     Active Substance: CYCLOSPORINE
  13. ESTRADIOL. [Concomitant]
     Active Substance: ESTRADIOL
  14. TEMAZEPAM. [Concomitant]
     Active Substance: TEMAZEPAM
  15. INSULIN DETEMIR [Concomitant]
     Active Substance: INSULIN DETEMIR
     Dosage: UNK
  16. POTASSIUM [Concomitant]
     Active Substance: POTASSIUM
  17. MILK THISTLE                       /01131701/ [Concomitant]
  18. BISOPROLOL [Concomitant]
     Active Substance: BISOPROLOL
  19. LEVOTHYROXINE. [Concomitant]
     Active Substance: LEVOTHYROXINE
     Dosage: UNK
  20. FOLIC ACID. [Concomitant]
     Active Substance: FOLIC ACID
  21. OMEPRAZOLE. [Concomitant]
     Active Substance: OMEPRAZOLE
  22. VITAMIN D3 [Concomitant]
     Active Substance: CHOLECALCIFEROL
  23. DEHYDROEPIANDROSTERONE [Concomitant]
     Active Substance: PRASTERONE
  24. PILOCARPINE. [Concomitant]
     Active Substance: PILOCARPINE
  25. MORPHINE [Concomitant]
     Active Substance: MORPHINE
  26. METFORMIN [Concomitant]
     Active Substance: METFORMIN HYDROCHLORIDE
  27. GUAIFENESIN. [Concomitant]
     Active Substance: GUAIFENESIN
  28. FUROSEMIDE. [Concomitant]
     Active Substance: FUROSEMIDE
  29. PROMETHAZINE [Concomitant]
     Active Substance: PROMETHAZINE\PROMETHAZINE HYDROCHLORIDE

REACTIONS (2)
  - Cellulitis [Recovered/Resolved]
  - Sepsis pasteurella [Recovered/Resolved]
